FAERS Safety Report 16180584 (Version 5)
Quarter: 2019Q3

REPORT INFORMATION
  Report Type: Spontaneous
  Country: US (occurrence: US)
  Receive Date: 20190410
  Receipt Date: 20190930
  Transmission Date: 20191004
  Serious: No
  Sender: FDA-Public Use
  Company Number: US-PFIZER INC-2019146263

PATIENT
  Age: 60 Year
  Sex: Male

DRUGS (7)
  1. LYRICA [Suspect]
     Active Substance: PREGABALIN
     Indication: PAIN
     Dosage: 75 MG, 3X/DAY (DISP: 90 CAPSULE:SIG: 1 CAPSULE THREE TIMES A DAY 30 DAYS]
     Route: 048
     Dates: start: 20190102, end: 201903
  2. LYRICA [Suspect]
     Active Substance: PREGABALIN
     Indication: NEOPLASM MALIGNANT
     Dosage: 150 MG, 3X/DAY
     Route: 048
  3. LYRICA [Suspect]
     Active Substance: PREGABALIN
     Indication: POLYNEUROPATHY
     Dosage: UNK
     Dates: start: 201801, end: 201807
  4. LYRICA [Suspect]
     Active Substance: PREGABALIN
     Indication: PROCTALGIA
  5. LYRICA [Suspect]
     Active Substance: PREGABALIN
     Indication: COLORECTAL CANCER
  6. LYRICA [Suspect]
     Active Substance: PREGABALIN
     Indication: COLON CANCER
  7. TRAMADOL. [Concomitant]
     Active Substance: TRAMADOL
     Indication: PAIN
     Dosage: UNK

REACTIONS (1)
  - Drug ineffective [Unknown]

NARRATIVE: CASE EVENT DATE: 201903
